FAERS Safety Report 7058810-0 (Version None)
Quarter: 2010Q4

REPORT INFORMATION
  Report Type: 
  Country: None (occurrence: None)
  Receive Date: 20101022
  Receipt Date: 20101020
  Transmission Date: 20110411
  Serious: No
  Sender: FDA-Public Use
  Company Number: US-PFIZER INC-2010124464

PATIENT
  Sex: Male
  Weight: 84.807 kg

DRUGS (7)
  1. LIPITOR [Suspect]
     Indication: BLOOD CHOLESTEROL INCREASED
     Dosage: 40 MG, 1X/DAY
     Route: 048
     Dates: start: 20080418
  2. GLUCOVANCE [Concomitant]
     Dosage: UNK,
  3. LEVOTHYROXINE [Concomitant]
     Dosage: UNK,
  4. FINASTERIDE [Concomitant]
     Dosage: UNK,
  5. OXYBUTYNIN [Concomitant]
     Dosage: UNK,
  6. GLYBURIDE [Concomitant]
     Dosage: UNK,
  7. METFORMIN [Concomitant]
     Dosage: UNK,

REACTIONS (1)
  - PRODUCT TASTE ABNORMAL [None]
